FAERS Safety Report 8983128 (Version 3)
Quarter: 2013Q1

REPORT INFORMATION
  Report Type: Report from Study
  Country: NZ (occurrence: NZ)
  Receive Date: 20121224
  Receipt Date: 20130221
  Transmission Date: 20140127
  Serious: Yes (Other)
  Sender: FDA-Public Use
  Company Number: PHHY2012NZ117967

PATIENT
  Age: 24 Year
  Sex: Male

DRUGS (1)
  1. CLOZARIL [Suspect]
     Indication: SCHIZOPHRENIA
     Dosage: UNK
     Dates: start: 20071011

REACTIONS (4)
  - Meningitis pneumococcal [Unknown]
  - White blood cell count increased [Unknown]
  - Mean platelet volume increased [Unknown]
  - Monocyte count increased [Unknown]
